FAERS Safety Report 5344311-4 (Version None)
Quarter: 2007Q2

REPORT INFORMATION
  Report Type: 
  Country: None (occurrence: None)
  Receive Date: 20070604
  Receipt Date: 20070523
  Transmission Date: 20071010
  Serious: Yes (Hospitalization)
  Sender: FDA-Public Use
  Company Number: JP-ASTRAZENECA-2007AP02784

PATIENT
  Age: 57 Year
  Sex: Female
  Weight: 110 kg

DRUGS (5)
  1. MEROPEN [Suspect]
     Indication: MENINGITIS BACTERIAL
     Route: 042
     Dates: start: 20070403, end: 20070409
  2. VICCILLIN [Suspect]
     Indication: MENINGITIS BACTERIAL
     Route: 041
     Dates: start: 20070404
  3. SOLITA T3 [Concomitant]
     Indication: DEHYDRATION
     Route: 041
     Dates: start: 20070403
  4. B-FLUID [Concomitant]
     Indication: DEHYDRATION
     Route: 041
     Dates: start: 20070403
  5. NICOLIN-H [Concomitant]
     Indication: DEPRESSED LEVEL OF CONSCIOUSNESS
     Route: 041
     Dates: start: 20070407

REACTIONS (2)
  - HAEMORRHAGIC DIATHESIS [None]
  - VITAMIN K DEFICIENCY [None]
